FAERS Safety Report 10367193 (Version 1)
Quarter: 2014Q3

REPORT INFORMATION
  Report Type: Spontaneous
  Country: US (occurrence: None)
  Receive Date: 20140805
  Receipt Date: 20140805
  Transmission Date: 20150326
  Serious: Yes (Other)
  Sender: FDA-Public Use
  Company Number: None

PATIENT
  Age: 60 Year
  Sex: Female

DRUGS (4)
  1. SYNTHROID [Suspect]
     Active Substance: LEVOTHYROXINE SODIUM
     Indication: HYPOTHYROIDISM
     Dosage: 1X DAILY IN AM 1X DAILY MOUTH-AM ON AN EMPTY STOMACH
     Route: 048
     Dates: start: 201101
  2. COQ10 [Concomitant]
     Active Substance: UBIDECARENONE
  3. VITAMIN D [Concomitant]
     Active Substance: CHOLECALCIFEROL
  4. UBIQUINOL(COQ10) [Concomitant]

REACTIONS (2)
  - Burning sensation [None]
  - Glossodynia [None]

NARRATIVE: CASE EVENT DATE: 20140618
